FAERS Safety Report 11744972 (Version 3)
Quarter: 2016Q2

REPORT INFORMATION
  Report Type: Spontaneous
  Country: US (occurrence: US)
  Receive Date: 20151117
  Receipt Date: 20160506
  Transmission Date: 20160815
  Serious: Yes (Hospitalization, Other)
  Sender: FDA-Public Use
  Company Number: US-PFIZER INC-2015378050

PATIENT
  Age: 39 Year
  Sex: Male

DRUGS (3)
  1. IBUPROFEN. [Suspect]
     Active Substance: IBUPROFEN
     Indication: PAIN
     Dosage: UNK
     Dates: start: 20150722, end: 20151022
  2. IBRANCE [Suspect]
     Active Substance: PALBOCICLIB
     Indication: LIPOSARCOMA
     Dosage: 125 MG, DAILY
     Route: 048
     Dates: start: 20150326, end: 20160129
  3. ENOXAPARIN [Suspect]
     Active Substance: ENOXAPARIN
     Dosage: UNK

REACTIONS (5)
  - Product use issue [Unknown]
  - Dizziness [Unknown]
  - Fall [Unknown]
  - Haematochezia [Unknown]
  - Gastrointestinal haemorrhage [Recovered/Resolved]

NARRATIVE: CASE EVENT DATE: 20150326
